FAERS Safety Report 6184241-1 (Version None)
Quarter: 2009Q2

REPORT INFORMATION
  Report Type: 
  Country: None (occurrence: None)
  Receive Date: 20090508
  Receipt Date: 20090430
  Transmission Date: 20091009
  Serious: Yes (Hospitalization)
  Sender: FDA-Public Use
  Company Number: JP-ABBOTT-09P-087-0568130-00

PATIENT
  Sex: Male

DRUGS (1)
  1. LEUPRORELIN DEPOT [Suspect]
     Indication: SPINAL MUSCULAR ATROPHY
     Route: 058
     Dates: start: 20080212

REACTIONS (1)
  - CEREBRAL INFARCTION [None]
